FAERS Safety Report 8529961-6 (Version None)
Quarter: 2012Q3

REPORT INFORMATION
  Report Type: 
  Country: None (occurrence: None)
  Receive Date: 20120723
  Receipt Date: 20120716
  Transmission Date: 20120928
  Serious: Yes (Other)
  Sender: FDA-Public Use
  Company Number: PHHY2012FR061861

PATIENT
  Age: 75 Year
  Sex: Female
  Weight: 76 kg

DRUGS (12)
  1. LANTUS [Concomitant]
  2. NOVORAPID [Concomitant]
  3. LEVOTHYROXINE SODIUM [Concomitant]
  4. BISOPROLOL FUMARATE [Concomitant]
  5. LASIX [Concomitant]
  6. PLAVIX [Concomitant]
     Dates: start: 20110101
  7. ESOMEPRAZOLE [Concomitant]
  8. ASPIRIN [Concomitant]
  9. ATORVASTATIN [Concomitant]
  10. ZOLEDRONOC ACID [Suspect]
     Dosage: UNK
     Route: 042
     Dates: start: 20120501
  11. POTASSIUM CHLORIDE [Concomitant]
     Dosage: UNK
     Dates: start: 20110101
  12. ZOLEDRONOC ACID [Suspect]
     Indication: OSTEOPOROSIS
     Route: 042
     Dates: start: 20110501

REACTIONS (2)
  - NEOPLASM MALIGNANT [None]
  - HAEMORRHAGE [None]
